FAERS Safety Report 6204593-3 (Version None)
Quarter: 2009Q2

REPORT INFORMATION
  Report Type: 
  Country: None (occurrence: None)
  Receive Date: 20090527
  Receipt Date: 20090513
  Transmission Date: 20091009
  Serious: Yes (Death)
  Sender: FDA-Public Use
  Company Number: RU-GENENTECH-281756

PATIENT
  Sex: Male
  Weight: 83.991 kg

DRUGS (3)
  1. TRASTUZUMAB [Suspect]
     Indication: GASTRIC CANCER
     Dosage: UNK MG, UNK
     Route: 042
     Dates: start: 20080725, end: 20090401
  2. CAPECITABINE [Suspect]
     Indication: GASTRIC CANCER
     Dosage: 4300 MG, D1-14/Q3W
     Route: 048
     Dates: start: 20080725, end: 20090401
  3. CISPLATIN [Suspect]
     Indication: GASTRIC CANCER
     Dosage: 176 MG, UNK
     Route: 042
     Dates: start: 20080725, end: 20090401

REACTIONS (1)
  - DEATH [None]
